FAERS Safety Report 7201993-X (Version None)
Quarter: 2010Q4

REPORT INFORMATION
  Report Type: 
  Country: None (occurrence: None)
  Receive Date: 20101229
  Receipt Date: 20101222
  Transmission Date: 20110411
  Serious: Yes (Death, Life-Threatening)
  Sender: FDA-Public Use
  Company Number: JP-JNJFOC-20101208675

PATIENT
  Sex: Female
  Weight: 53 kg

DRUGS (4)
  1. DOXIL [Suspect]
     Indication: OVARIAN CANCER RECURRENT
     Dosage: CYCLE 1
     Route: 042
  2. RESTAMIN [Concomitant]
     Indication: PROPHYLAXIS
     Route: 048
  3. GRANISETRON HCL [Concomitant]
     Indication: PROPHYLAXIS
     Route: 042
  4. DECADRON [Concomitant]
     Indication: PROPHYLAXIS
     Route: 042

REACTIONS (3)
  - DEHYDRATION [None]
  - DIARRHOEA [None]
  - RESPIRATORY FAILURE [None]
